FAERS Safety Report 13410487 (Version 2)
Quarter: 2017Q4

REPORT INFORMATION
  Report Type: Spontaneous
  Country: US (occurrence: US)
  Receive Date: 20170406
  Receipt Date: 20171123
  Transmission Date: 20180320
  Serious: No
  Sender: FDA-Public Use
  Company Number: US-JNJFOC-20170223555

PATIENT
  Age: 5 Year
  Sex: Male

DRUGS (3)
  1. RISPERDAL [Suspect]
     Active Substance: RISPERIDONE
     Indication: ATTENTION DEFICIT/HYPERACTIVITY DISORDER
     Dosage: V1: VARYING DOSES OF 0.25 MG, 0.5 MG AND VARYING FREQUENCIES.
     Route: 048
     Dates: start: 20030313, end: 20060108
  2. RISPERDAL [Suspect]
     Active Substance: RISPERIDONE
     Indication: POST-TRAUMATIC STRESS DISORDER
     Dosage: V1: VARYING DOSES OF 0.25 MG, 0.5 MG AND VARYING FREQUENCIES.
     Route: 048
     Dates: start: 20030313, end: 20060108
  3. RISPERDAL [Suspect]
     Active Substance: RISPERIDONE
     Indication: ADJUSTMENT DISORDER
     Dosage: V1: VARYING DOSES OF 0.25 MG, 0.5 MG AND VARYING FREQUENCIES.
     Route: 048
     Dates: start: 20030313, end: 20060108

REACTIONS (4)
  - Gynaecomastia [Unknown]
  - Emotional disorder [Unknown]
  - Off label use [Unknown]
  - Product use in unapproved indication [Unknown]

NARRATIVE: CASE EVENT DATE: 20030313
